FAERS Safety Report 8913782 (Version 1)
Quarter: 2012Q4

REPORT INFORMATION
  Report Type: 
  Country: US (occurrence: US)
  Receive Date: 20121119
  Receipt Date: 20121119
  Transmission Date: 20130627
  Serious: No
  Sender: FDA-Public Use
  Company Number: US-B.I. PHARMACEUTICALS,INC./RIDGEFIELD-2012-BI-00532BP

PATIENT
  Age: 64 Year
  Sex: Male
  Weight: 84 kg

DRUGS (11)
  1. PRADAXA [Suspect]
     Indication: ATRIAL FIBRILLATION
     Dosage: 300 mg
     Route: 048
     Dates: start: 201207
  2. FUROSEMIDE [Concomitant]
     Dosage: 40 mg
     Route: 048
     Dates: start: 201207
  3. METROPOLOL TARTRATE [Concomitant]
     Indication: CARDIAC DISORDER
     Dosage: 25 mg
     Route: 048
     Dates: start: 201207
  4. DABIGATRAM [Concomitant]
     Indication: CARDIAC DISORDER
     Dosage: 300 mg
     Route: 048
     Dates: start: 201207
  5. RAMIPRIL [Concomitant]
     Indication: CARDIAC DISORDER
     Dosage: 2.5 mg
     Route: 048
     Dates: start: 201207
  6. ASPIRIN [Concomitant]
     Indication: CARDIAC DISORDER
     Dosage: 81 mg
     Route: 048
     Dates: start: 201207
  7. FAMOTIDINE [Concomitant]
     Indication: CARDIAC DISORDER
     Dosage: 20 mg
     Route: 048
     Dates: start: 201207
  8. CLOPIDOGREL [Concomitant]
     Indication: CARDIAC DISORDER
     Dosage: 75 mg
     Route: 048
     Dates: start: 201207
  9. GABAPENTIN [Concomitant]
     Indication: NERVE INJURY
     Dosage: 200 mg
     Route: 048
     Dates: start: 2006
  10. SIMVASTATIN [Concomitant]
     Indication: BLOOD CHOLESTEROL INCREASED
     Dosage: 40 mg
     Route: 048
     Dates: start: 2007
  11. FISH OIL [Concomitant]
     Indication: CARDIAC DISORDER
     Dosage: 2000 mg
     Route: 048
     Dates: start: 201207

REACTIONS (2)
  - Gait disturbance [Not Recovered/Not Resolved]
  - Pain in extremity [Not Recovered/Not Resolved]
